FAERS Safety Report 17468532 (Version 5)
Quarter: 2022Q4

REPORT INFORMATION
  Report Type: Spontaneous
  Country: FR (occurrence: FR)
  Receive Date: 20200227
  Receipt Date: 20221114
  Transmission Date: 20230113
  Serious: Yes (Death, Hospitalization, Other)
  Sender: FDA-Public Use
  Company Number: FR-EMA-DD-20200110-KUMARVN_P-105945

PATIENT
  Age: 38 Year
  Sex: Female

DRUGS (6)
  1. METHOTREXATE [Suspect]
     Active Substance: METHOTREXATE
     Indication: Rheumatoid arthritis
     Dosage: 10 MG, QW
     Route: 065
  2. BETAMETHASONE VALERATE [Suspect]
     Active Substance: BETAMETHASONE VALERATE
     Indication: Pruritus
     Dosage: 600 G,20 TUBES A MONTH/600 GM/MONTH OR 7.2 KG/YR
     Route: 061
  3. BETAMETHASONE VALERATE [Suspect]
     Active Substance: BETAMETHASONE VALERATE
     Dosage: UNK
     Route: 061
  4. BETAMETHASONE VALERATE [Suspect]
     Active Substance: BETAMETHASONE VALERATE
     Dosage: 600 G, Q1MON
     Route: 061
  5. BETAMETHASONE VALERATE [Suspect]
     Active Substance: BETAMETHASONE VALERATE
     Dosage: 600 G, Q1MON, 4 MONTHS
     Route: 061
  6. Dexeryl [Concomitant]
     Dosage: UNK, QD
     Route: 065

REACTIONS (24)
  - Multiple organ dysfunction syndrome [Fatal]
  - Adrenal insufficiency [Fatal]
  - Septic shock [Fatal]
  - Netherton^s syndrome [Fatal]
  - Fibula fracture [Fatal]
  - Skin infection [Fatal]
  - Wound necrosis [Fatal]
  - Osteoporosis [Fatal]
  - Intertrigo [Fatal]
  - Traumatic fracture [Fatal]
  - Skin atrophy [Fatal]
  - Renal failure [Fatal]
  - Fall [Fatal]
  - Cushing^s syndrome [Fatal]
  - Adrenocorticotropic hormone deficiency [Fatal]
  - Intentional product misuse [Fatal]
  - Drug abuse [Fatal]
  - Amyotrophy [Unknown]
  - Necrosis [Unknown]
  - Skin striae [Unknown]
  - Lipohypertrophy [Unknown]
  - Pseudomonas infection [Unknown]
  - Serratia infection [Unknown]
  - Telangiectasia [Unknown]
